FAERS Safety Report 25056029 (Version 1)
Quarter: 2025Q1

REPORT INFORMATION
  Report Type: Report from Study
  Country: US (occurrence: US)
  Receive Date: 20250309
  Receipt Date: 20250309
  Transmission Date: 20250409
  Serious: Yes (Hospitalization)
  Sender: GILEAD
  Company Number: US-GILEAD-2025-0706283

PATIENT
  Age: 36 Year
  Sex: Female

DRUGS (19)
  1. AZTREONAM LYSINE [Suspect]
     Active Substance: AZTREONAM LYSINE
     Indication: Cystic fibrosis
     Dosage: 75 MG, TID [INHALE 75MG VIA NEBULIZER THREE TIMES DAILY FOR 28 DAYS ON/ 56 DAYS OFF]
     Route: 055
     Dates: start: 20190226
  2. HIZENTRA [Concomitant]
     Active Substance: HUMAN IMMUNOGLOBULIN G
  3. TOBRAMYCIN COX [Concomitant]
  4. AMITRIPTYLINE [Concomitant]
     Active Substance: AMITRIPTYLINE
  5. ALBUTEROL SULFATE [Concomitant]
     Active Substance: ALBUTEROL SULFATE
  6. ATOVAQUONE [Concomitant]
     Active Substance: ATOVAQUONE
  7. AZITHROMYCIN +PHARMA [Concomitant]
  8. BACLOFEN [Concomitant]
     Active Substance: BACLOFEN
  9. EPINEPHRINE [Concomitant]
     Active Substance: EPINEPHRINE
  10. MYCOPHENOLATE MOFETIL [Concomitant]
     Active Substance: MYCOPHENOLATE MOFETIL
  11. PANCREAZE [Concomitant]
     Active Substance: PANCRELIPASE AMYLASE\PANCRELIPASE LIPASE\PANCRELIPASE PROTEASE
  12. PREDNISONE ACETATE [Concomitant]
     Active Substance: PREDNISONE ACETATE
  13. RIZATRIPTAN [Concomitant]
     Active Substance: RIZATRIPTAN
  14. TACROLIMUS [Concomitant]
     Active Substance: TACROLIMUS
  15. TOBI [Concomitant]
     Active Substance: TOBRAMYCIN
  16. URSODIOL [Concomitant]
     Active Substance: URSODIOL
  17. VALACYCLOVIR HYDROCHLORIDE [Concomitant]
     Active Substance: VALACYCLOVIR HYDROCHLORIDE
  18. VORICONAZOLE [Concomitant]
     Active Substance: VORICONAZOLE
  19. TRIKAFTA [Concomitant]
     Active Substance: ELEXACAFTOR\IVACAFTOR\TEZACAFTOR

REACTIONS (2)
  - Dyspnoea [Unknown]
  - Product use issue [Not Recovered/Not Resolved]
